FAERS Safety Report 5086987-5 (Version None)
Quarter: 2006Q3

REPORT INFORMATION
  Report Type: 
  Country: None (occurrence: None)
  Receive Date: 20060821
  Receipt Date: 20060804
  Transmission Date: 20061208
  Serious: Yes (Other)
  Sender: FDA-Public Use
  Company Number: 2006AL002141

PATIENT
  Age: 29 Year
  Sex: Female

DRUGS (2)
  1. GABAPENTIN [Suspect]
     Indication: EPILEPSY
     Dosage: 800 MG;TID;PO
     Route: 048
     Dates: start: 19980101
  2. CLONAZEPAM [Concomitant]
     Indication: NEURALGIA

REACTIONS (5)
  - FALL [None]
  - PHARMACEUTICAL PRODUCT COMPLAINT [None]
  - SENSORY LOSS [None]
  - THERMAL BURN [None]
  - UNRESPONSIVE TO STIMULI [None]
